FAERS Safety Report 25670960 (Version 1)
Quarter: 2025Q3

REPORT INFORMATION
  Report Type: Spontaneous
  Country: EU (occurrence: EU)
  Receive Date: 20250812
  Receipt Date: 20250812
  Transmission Date: 20251020
  Serious: Yes (Other)
  Sender: ALEXION PHARMACEUTICALS
  Company Number: None

PATIENT
  Age: 72 Year
  Sex: Female
  Weight: 80.8 kg

DRUGS (9)
  1. DAPAGLIFLOZIN [Suspect]
     Active Substance: DAPAGLIFLOZIN
     Indication: Chronic kidney disease
     Dosage: 10 MILLIGRAM, QD
     Dates: start: 20231023, end: 202311
  2. CANDESARTAN CILEXETIL [Concomitant]
     Active Substance: CANDESARTAN CILEXETIL
     Indication: Hypertension
     Dosage: 16 MILLIGRAM, QD
  3. BISOPROLOL [Concomitant]
     Active Substance: BISOPROLOL
     Indication: Hypertension
     Dosage: 2.5 MILLIGRAM, QD
  4. PLAVIX [Concomitant]
     Active Substance: CLOPIDOGREL BISULFATE
     Indication: Cardiovascular event prophylaxis
     Dosage: 75 MILLIGRAM, QD
  5. FUROSEMIDE [Concomitant]
     Active Substance: FUROSEMIDE
     Indication: Chronic kidney disease
     Dosage: 20 MILLIGRAM, QD
  6. FEBUXOSTAT [Concomitant]
     Active Substance: FEBUXOSTAT
     Indication: Gout
     Dosage: 80 MILLIGRAM, QD
  7. CRESTOR [Concomitant]
     Active Substance: ROSUVASTATIN CALCIUM
     Indication: Dyslipidaemia
     Dosage: 5 MILLIGRAM, QD
  8. OMEPRAZOLE [Concomitant]
     Active Substance: OMEPRAZOLE
     Indication: Gastrooesophageal reflux prophylaxis
     Dosage: 20 MILLIGRAM, QD
  9. CHOLECALCIFEROL [Concomitant]
     Active Substance: CHOLECALCIFEROL
     Indication: Vitamin supplementation

REACTIONS (1)
  - Fixed eruption [Recovered/Resolved with Sequelae]

NARRATIVE: CASE EVENT DATE: 20231031
